FAERS Safety Report 9415666 (Version 1)
Quarter: 2013Q3

REPORT INFORMATION
  Report Type: Spontaneous
  Country: FR (occurrence: FR)
  Receive Date: 20130723
  Receipt Date: 20130723
  Transmission Date: 20140515
  Serious: Yes (Hospitalization)
  Sender: FDA-Public Use
  Company Number: FR-VERTEX PHARMACEUTICALS INC-2013-008184

PATIENT
  Age: 66 Year
  Sex: Male
  Weight: 91 kg

DRUGS (10)
  1. INCIVO [Suspect]
     Indication: HEPATITIS C
     Dosage: 750 MG, TID, TABLET
     Route: 065
     Dates: start: 20120216, end: 20120510
  2. PEGASYS [Suspect]
     Indication: HEPATITIS C
     Dosage: DOSAGE FORM: UNSPECIFIED
     Route: 065
     Dates: start: 20120216, end: 20121026
  3. PEGASYS [Suspect]
     Dosage: DOSAGE FORM: UNSPECIFIED
     Route: 065
     Dates: start: 20121026, end: 20130117
  4. COPEGUS [Suspect]
     Indication: HEPATITIS C
     Dosage: DOSAGE FORM: UNSPECIFIED
     Route: 065
     Dates: start: 20120216, end: 20130117
  5. TOCO [Suspect]
     Indication: ANTIOXIDANT THERAPY
     Dosage: DOSAGE FORM: UNSPECIFIED
     Route: 065
     Dates: start: 20120510
  6. VITAMIN C [Suspect]
     Indication: ANTIOXIDANT THERAPY
     Dosage: DOSAGE FORM: UNSPECIFIED
     Route: 065
     Dates: start: 20120216
  7. PARACETAMOL [Suspect]
     Indication: INFLUENZA LIKE ILLNESS
     Dosage: DOSAGE FORM: UNSPECIFIED, 1 G ON THE EVENING
     Route: 065
     Dates: start: 20120216, end: 20130117
  8. DIPROSONE [Suspect]
     Indication: PRURITUS
     Dosage: DOSAGE FORM: UNSPECIFIED, STRENGTH:0.05%, 2 APPLICATIONS/DAY
     Route: 061
     Dates: start: 20120315
  9. DEXERYL CREAM [Suspect]
     Indication: DRY SKIN
     Dosage: DOSAGE FORM: CREAM, 2 APPLICATIONS/DAY
     Route: 061
     Dates: start: 20120216
  10. ATARAX [Suspect]
     Indication: ANXIETY
     Dosage: DOSAGE FORM: TABLET, HALF A TABLET
     Route: 065
     Dates: start: 20120315, end: 20120322

REACTIONS (3)
  - Diabetes mellitus [Unknown]
  - Pancreatic carcinoma [Unknown]
  - Pancreatitis acute [Unknown]
